FAERS Safety Report 8500989-5 (Version None)
Quarter: 2012Q3

REPORT INFORMATION
  Report Type: 
  Country: None (occurrence: None)
  Receive Date: 20120710
  Receipt Date: 20120627
  Transmission Date: 20120928
  Serious: No
  Sender: FDA-Public Use
  Company Number: US-ASTRAZENECA-2012SE43401

PATIENT
  Age: 31 Year
  Sex: Female
  Weight: 68 kg

DRUGS (4)
  1. SEROQUEL XR [Suspect]
     Indication: SLEEP DISORDER
     Route: 048
     Dates: end: 20090101
  2. SEROQUEL XR [Suspect]
     Route: 048
     Dates: start: 20100101
  3. SIMVALTA [Concomitant]
     Indication: DEPRESSION
  4. SEROQUEL XR [Suspect]
     Route: 048
     Dates: start: 20090101

REACTIONS (2)
  - MATERNAL EXPOSURE DURING PREGNANCY [None]
  - INSOMNIA [None]
